FAERS Safety Report 8443974-4 (Version None)
Quarter: 2012Q2

REPORT INFORMATION
  Report Type: 
  Country: None (occurrence: None)
  Receive Date: 20120618
  Receipt Date: 20120611
  Transmission Date: 20120825
  Serious: Yes (Disabling)
  Sender: FDA-Public Use
  Company Number: PHEH2012US010692

PATIENT
  Sex: Female
  Weight: 137 kg

DRUGS (3)
  1. PHENYLPROPANOLAMINE HCL [Concomitant]
     Dosage: 5-20 MG, QD
     Route: 048
     Dates: start: 20090828
  2. EXELON [Suspect]
     Indication: DEMENTIA ALZHEIMER'S TYPE
     Dosage: 9.5MG, DAILY
     Route: 062
     Dates: start: 20120409, end: 20120514
  3. VESICARE [Concomitant]
     Indication: INCONTINENCE
     Dosage: 5 MG, QD
     Route: 048
     Dates: start: 20081229

REACTIONS (4)
  - SKIN IRRITATION [None]
  - SKIN BURNING SENSATION [None]
  - APPLICATION SITE ERYTHEMA [None]
  - PRURITUS [None]
